FAERS Safety Report 6245227-1 (Version None)
Quarter: 2009Q2

REPORT INFORMATION
  Report Type: 
  Country: None (occurrence: None)
  Receive Date: 20090619
  Receipt Date: 20090320
  Transmission Date: 20091009
  Serious: No
  Sender: FDA-Public Use
  Company Number: ALL1-2009-00767

PATIENT
  Age: 51 Year
  Sex: Female
  Weight: 47.6 kg

DRUGS (4)
  1. VYVANSE [Suspect]
     Indication: ATTENTION DEFICIT/HYPERACTIVITY DISORDER
     Dosage: (1/2 OF A 30MG CAPSULE) 1X/DAY:QD, ORAL
     Route: 048
     Dates: start: 20090201, end: 20090201
  2. CALCIUM (CALCIUM) [Concomitant]
  3. LOVAZA [Concomitant]
  4. VITAMIN D [Concomitant]

REACTIONS (2)
  - DYSPHASIA [None]
  - INCORRECT DOSE ADMINISTERED [None]
